FAERS Safety Report 19690181 (Version 3)
Quarter: 2022Q1

REPORT INFORMATION
  Report Type: Spontaneous
  Country: CA (occurrence: CA)
  Receive Date: 20210812
  Receipt Date: 20220129
  Transmission Date: 20220423
  Serious: Yes (Other)
  Sender: FDA-Public Use
  Company Number: CA-CELLTRION INC.-2021CA010581

PATIENT

DRUGS (5)
  1. INFLECTRA [Suspect]
     Active Substance: INFLIXIMAB-DYYB
     Indication: Crohn^s disease
     Dosage: 400 MG, Q (EVERY) 0, 2, 6, THEN EVERY 8 WEEKS
     Route: 042
     Dates: start: 20210426
  2. INFLECTRA [Suspect]
     Active Substance: INFLIXIMAB-DYYB
     Dosage: 400 MG, Q (EVERY) 0, 2, 6, THEN EVERY 8 WEEKS
     Route: 042
     Dates: start: 20210607
  3. INFLECTRA [Suspect]
     Active Substance: INFLIXIMAB-DYYB
     Dosage: 400 MG, Q (EVERY) 0, 2, 6, THEN EVERY 8 WEEKS
     Route: 042
     Dates: start: 20210727
  4. INFLECTRA [Suspect]
     Active Substance: INFLIXIMAB-DYYB
     Dosage: 400 MG,Q (EVERY) 0, 2, 6, THEN EVERY 8 WEEKS
     Route: 042
     Dates: start: 20210831
  5. IMURAN [Concomitant]
     Active Substance: AZATHIOPRINE
     Dosage: 4 DF, DAILY

REACTIONS (17)
  - Crohn^s disease [Unknown]
  - Neutropenia [Unknown]
  - Drug ineffective [Unknown]
  - Drug level above therapeutic [Unknown]
  - Nausea [Unknown]
  - Faecal calprotectin increased [Unknown]
  - Red blood cell count decreased [Unknown]
  - Haemoglobin decreased [Unknown]
  - Haematocrit decreased [Unknown]
  - Mean cell volume increased [Unknown]
  - Red cell distribution width increased [Unknown]
  - Vitamin B12 decreased [Unknown]
  - Normochromic normocytic anaemia [Unknown]
  - Serum ferritin decreased [Unknown]
  - Iron deficiency [Unknown]
  - Inappropriate schedule of product administration [Unknown]
  - Off label use [Unknown]

NARRATIVE: CASE EVENT DATE: 20210712
